FAERS Safety Report 10764899 (Version 1)
Quarter: 2015Q1

REPORT INFORMATION
  Report Type: Spontaneous
  Country: US (occurrence: None)
  Receive Date: 20150203
  Receipt Date: 20150203
  Transmission Date: 20150721
  Serious: No
  Sender: FDA-Public Use
  Company Number: 15AE004

PATIENT
  Sex: Female

DRUGS (3)
  1. CVS IBUPROFEN 200MG FILM COATED BROWN ROUND TABLETS [Suspect]
     Active Substance: IBUPROFEN
     Indication: FIBROMYALGIA
     Dosage: 8 BY MOUTH/DAILY
     Route: 048
  2. NEURONTIN [Concomitant]
     Active Substance: GABAPENTIN
  3. CVS IBUPROFEN 200MG FILM COATED BROWN ROUND TABLETS [Suspect]
     Active Substance: IBUPROFEN
     Indication: PAIN
     Dosage: 8 BY MOUTH/DAILY
     Route: 048

REACTIONS (1)
  - Drug screen false positive [None]

NARRATIVE: CASE EVENT DATE: 20150122
